FAERS Safety Report 12752255 (Version 2)
Quarter: 2017Q3

REPORT INFORMATION
  Report Type: Spontaneous
  Country: US (occurrence: US)
  Receive Date: 20160915
  Receipt Date: 20170816
  Transmission Date: 20171127
  Serious: Yes (Death, Other)
  Sender: FDA-Public Use
  Company Number: US-ASTELLAS-2016US027562

PATIENT
  Age: 84 Year
  Sex: Male

DRUGS (1)
  1. XTANDI [Suspect]
     Active Substance: ENZALUTAMIDE
     Indication: PROSTATE CANCER
     Route: 048

REACTIONS (5)
  - Death [Fatal]
  - Peripheral swelling [Not Recovered/Not Resolved]
  - Malignant neoplasm progression [Unknown]
  - Lip swelling [Unknown]
  - Constipation [Unknown]

NARRATIVE: CASE EVENT DATE: 20170805
